FAERS Safety Report 5928367-3 (Version None)
Quarter: 2008Q4

REPORT INFORMATION
  Report Type: 
  Country: None (occurrence: None)
  Receive Date: 20081023
  Receipt Date: 20081007
  Transmission Date: 20090506
  Serious: Yes (Other)
  Sender: FDA-Public Use
  Company Number: JP-PFIZER INC-2008081213

PATIENT
  Age: 60 Year
  Sex: Male

DRUGS (2)
  1. AMLODIN [Suspect]
     Indication: HYPERTENSION
     Route: 048
  2. MICARDIS [Suspect]
     Dosage: DAILY DOSE:40MG
     Route: 048

REACTIONS (2)
  - BLOOD CREATININE INCREASED [None]
  - DRUG ERUPTION [None]
